FAERS Safety Report 25347650 (Version 1)
Quarter: 2025Q2

REPORT INFORMATION
  Report Type: Spontaneous
  Country: US (occurrence: None)
  Receive Date: 20250522
  Receipt Date: 20250522
  Transmission Date: 20250717
  Serious: Yes (Disabling, Other)
  Sender: FDA-CTU
  Company Number: None

PATIENT
  Age: 55 Year
  Sex: Female
  Weight: 85.5 kg

DRUGS (7)
  1. RINVOQ [Suspect]
     Active Substance: UPADACITINIB
     Indication: Eczema
  2. RINVOQ [Concomitant]
     Active Substance: UPADACITINIB
  3. ALBUTEROL [Concomitant]
     Active Substance: ALBUTEROL
  4. DUPIXENT [Concomitant]
     Active Substance: DUPILUMAB
  5. BUSPAR [Concomitant]
     Active Substance: BUSPIRONE HYDROCHLORIDE
  6. MAGNESIUM [Concomitant]
     Active Substance: MAGNESIUM
  7. WILD YAM [Concomitant]
     Active Substance: DIOSCOREA VILLOSA ROOT

REACTIONS (5)
  - Therapeutic product effect decreased [None]
  - Wrong technique in product usage process [None]
  - Swelling [None]
  - Pruritus [None]
  - Skin texture abnormal [None]

NARRATIVE: CASE EVENT DATE: 19790127
